FAERS Safety Report 5710511-4 (Version None)
Quarter: 2008Q2

REPORT INFORMATION
  Report Type: 
  Country: None (occurrence: None)
  Receive Date: 20080415
  Receipt Date: 20080408
  Transmission Date: 20081010
  Serious: Yes (Death, Hospitalization, Other)
  Sender: FDA-Public Use
  Company Number: S08-USA-00566-01

PATIENT
  Age: 87 Year
  Sex: Female

DRUGS (7)
  1. LEXAPRO [Suspect]
     Indication: DEPRESSION
     Dosage: 10 MG QD PO
     Route: 048
     Dates: start: 20071201, end: 20080124
  2. ISOSORBIDE DINITRATE [Concomitant]
  3. PRINIVIL [Concomitant]
  4. COLACE (DOCUSATE SODIUM) [Concomitant]
  5. THIAMINE [Concomitant]
  6. WARFARIN SODIUM [Concomitant]
  7. NEURONTIN [Concomitant]

REACTIONS (8)
  - CARDIOVASCULAR DISORDER [None]
  - CONFUSIONAL STATE [None]
  - CONVULSION [None]
  - GENERAL PHYSICAL HEALTH DETERIORATION [None]
  - MUSCULOSKELETAL STIFFNESS [None]
  - PERIPHERAL VASCULAR DISORDER [None]
  - SOMNOLENCE [None]
  - TREMOR [None]
